FAERS Safety Report 7513803-1 (Version None)
Quarter: 2011Q2

REPORT INFORMATION
  Report Type: 
  Country: None (occurrence: None)
  Receive Date: 20110531
  Receipt Date: 20110524
  Transmission Date: 20111010
  Serious: Yes (Other)
  Sender: FDA-Public Use
  Company Number: PHHY2011GB44338

PATIENT
  Age: 32 Year
  Sex: Female

DRUGS (2)
  1. PREDNISOLONE [Suspect]
     Dosage: UNK
  2. COTRIM [Suspect]
     Indication: PNEUMOCYSTIS JIROVECI PNEUMONIA
     Dosage: 1800 MG, BID
     Route: 042

REACTIONS (5)
  - PSYCHOTIC DISORDER [None]
  - PNEUMOCYSTIS JIROVECI PNEUMONIA [None]
  - PSYCHOTIC BEHAVIOUR [None]
  - PERSECUTORY DELUSION [None]
  - DYSPNOEA [None]
